FAERS Safety Report 25018264 (Version 1)
Quarter: 2025Q1

REPORT INFORMATION
  Report Type: Spontaneous
  Country: BR (occurrence: BR)
  Receive Date: 20250227
  Receipt Date: 20250227
  Transmission Date: 20250409
  Serious: Yes (Other)
  Sender: Haleon PLC
  Company Number: BR-HALEON-2186538

PATIENT
  Age: 68 Year
  Sex: Female

DRUGS (3)
  1. DICLOFENAC [Suspect]
     Active Substance: DICLOFENAC
     Indication: Pain
     Route: 065
  2. CODEINE PHOSPHATE\DICLOFENAC SODIUM [Suspect]
     Active Substance: CODEINE PHOSPHATE\DICLOFENAC SODIUM
     Indication: Pain
     Route: 065
  3. CLONAZEPAM [Concomitant]
     Active Substance: CLONAZEPAM
     Indication: Product used for unknown indication

REACTIONS (9)
  - Cerebral haemorrhage [Unknown]
  - Suicide attempt [Unknown]
  - Abnormal behaviour [Not Recovered/Not Resolved]
  - Spinal column injury [Unknown]
  - Injury [Unknown]
  - Pain [Unknown]
  - Spinal cord compression [Unknown]
  - Abnormal faeces [Unknown]
  - Product dose omission issue [Unknown]
